FAERS Safety Report 4358153-X (Version None)
Quarter: 2004Q2

REPORT INFORMATION
  Report Type: 
  Country: None (occurrence: None)
  Receive Date: 20040511
  Receipt Date: 20040430
  Transmission Date: 20050107
  Serious: Yes (Hospitalization)
  Sender: FDA-Public Use
  Company Number: FR-JNJFOC-20040500293

PATIENT
  Age: 40 Year
  Sex: Female
  Weight: 50 kg

DRUGS (6)
  1. REMICADE [Suspect]
     Indication: ANKYLOSING SPONDYLITIS
     Dosage: 280 MG, INTRAVENOUS; 275 MG, INTRAVENOUS; 272 MG, INTRAVENOUS; 273 MG, INTRAVENOUS
     Route: 042
     Dates: start: 20030623, end: 20030707
  2. REMICADE [Suspect]
     Indication: ANKYLOSING SPONDYLITIS
     Dosage: 280 MG, INTRAVENOUS; 275 MG, INTRAVENOUS; 272 MG, INTRAVENOUS; 273 MG, INTRAVENOUS
     Route: 042
     Dates: start: 20030707, end: 20030915
  3. REMICADE [Suspect]
     Indication: ANKYLOSING SPONDYLITIS
     Dosage: 280 MG, INTRAVENOUS; 275 MG, INTRAVENOUS; 272 MG, INTRAVENOUS; 273 MG, INTRAVENOUS
     Route: 042
     Dates: start: 20030915, end: 20031027
  4. REMICADE [Suspect]
     Indication: ANKYLOSING SPONDYLITIS
     Dosage: 280 MG, INTRAVENOUS; 275 MG, INTRAVENOUS; 272 MG, INTRAVENOUS; 273 MG, INTRAVENOUS
     Route: 042
     Dates: start: 20031027, end: 20031027
  5. FELDENE [Concomitant]
  6. OMEPRAZOLE [Concomitant]

REACTIONS (11)
  - ABDOMINAL PAIN [None]
  - ADRENAL INSUFFICIENCY [None]
  - ANOREXIA [None]
  - ASTHENIA [None]
  - DISEASE RECURRENCE [None]
  - HEADACHE [None]
  - MITRAL VALVE INCOMPETENCE [None]
  - NAUSEA [None]
  - PRURITUS [None]
  - VERTIGO [None]
  - WEIGHT DECREASED [None]
